FAERS Safety Report 21361650 (Version 2)
Quarter: 2022Q4

REPORT INFORMATION
  Report Type: Spontaneous
  Country: JP (occurrence: JP)
  Receive Date: 20220921
  Receipt Date: 20221004
  Transmission Date: 20230113
  Serious: Yes (Hospitalization)
  Sender: FDA-Public Use
  Company Number: JP-MTPC-MTPC2022-0024839

PATIENT
  Age: 10 Month
  Sex: Male

DRUGS (2)
  1. REMICADE [Suspect]
     Active Substance: INFLIXIMAB
     Indication: Inflammatory bowel disease
     Dosage: 5 MILLIGRAM/KILOGRAM, QD
     Route: 041
  2. AZATHIOPRINE [Concomitant]
     Active Substance: AZATHIOPRINE
     Indication: Inflammatory bowel disease
     Route: 048

REACTIONS (1)
  - Stenosis [Recovered/Resolved]
